FAERS Safety Report 21882577 (Version 1)
Quarter: 2023Q1

REPORT INFORMATION
  Report Type: Report from Study
  Country: US (occurrence: US)
  Receive Date: 20230119
  Receipt Date: 20230119
  Transmission Date: 20230418
  Serious: Yes (Other)
  Sender: FDA-Public Use
  Company Number: US-SUN PHARMACEUTICAL INDUSTRIES LTD-2023R1-373275

PATIENT
  Age: 29 Year
  Sex: Female

DRUGS (2)
  1. PREDNISONE [Suspect]
     Active Substance: PREDNISONE
     Indication: Immunosuppression
     Dosage: UNK
     Route: 065
  2. HYDROXYCHLOROQUINE [Suspect]
     Active Substance: HYDROXYCHLOROQUINE
     Indication: Immunosuppression
     Dosage: UNK
     Route: 065

REACTIONS (6)
  - Cytomegalovirus colitis [Unknown]
  - Haematochezia [Unknown]
  - Gastritis [Unknown]
  - Cytomegalovirus oesophagitis [Unknown]
  - Swelling face [Unknown]
  - Jugular vein thrombosis [Unknown]
